FAERS Safety Report 4633294-8 (Version None)
Quarter: 2005Q2

REPORT INFORMATION
  Report Type: 
  Country: None (occurrence: None)
  Receive Date: 20050412
  Receipt Date: 20050331
  Transmission Date: 20051028
  Serious: Yes (Other)
  Sender: FDA-Public Use
  Company Number: 2005052888

PATIENT
  Sex: Male
  Weight: 104.3273 kg

DRUGS (9)
  1. LIPITOR [Suspect]
     Indication: BLOOD CHOLESTEROL INCREASED
     Dosage: 80 MG (40 MG, 2 IN 1 D), ORAL
     Route: 048
     Dates: end: 20050301
  2. LOPID [Suspect]
     Indication: BLOOD CHOLESTEROL INCREASED
     Dosage: ORAL
     Route: 048
  3. ACCUPRIL [Suspect]
     Indication: HYPERTENSION
     Dosage: 20 MG (20 MG, 1 IN 1 D), ORAL
     Route: 048
  4. GABAPENTIN [Concomitant]
  5. ROSIGLITAZONE MALEATE [Concomitant]
  6. DIPYRIDAMOLE [Concomitant]
  7. FUROSEMIDE [Concomitant]
  8. VERAPAMIL [Concomitant]
  9. HUMAN MIXTARD (INSULIN HUMAN, INSULIN HUMAN INJECTION, ISOPHANE) [Concomitant]

REACTIONS (8)
  - BLOOD PRESSURE DECREASED [None]
  - CEREBROVASCULAR ACCIDENT [None]
  - HEART RATE INCREASED [None]
  - INTERVERTEBRAL DISC DISORDER [None]
  - JOINT SURGERY [None]
  - MUSCULOSKELETAL DISORDER [None]
  - MYALGIA [None]
  - NEUROPATHY PERIPHERAL [None]
